FAERS Safety Report 9696693 (Version 1)
Quarter: 2013Q4

REPORT INFORMATION
  Report Type: Spontaneous
  Country: US (occurrence: US)
  Receive Date: 20131119
  Receipt Date: 20131119
  Transmission Date: 20140711
  Serious: No
  Sender: FDA-Public Use
  Company Number: US-GILEAD-2007-0014068

PATIENT
  Sex: Female
  Weight: 52.62 kg

DRUGS (20)
  1. LETAIRIS [Suspect]
     Indication: PULMONARY ARTERIAL HYPERTENSION
     Route: 048
     Dates: end: 20071029
  2. CALCIUM [Concomitant]
     Route: 048
  3. COUMADIN [Concomitant]
     Dosage: 2 DAYS/WEEK
     Route: 048
  4. COUMADIN [Concomitant]
     Dosage: 5 DAYS/WEEK
     Route: 048
  5. OXYGEN [Concomitant]
     Dosage: 4-5 LITERS
     Route: 055
  6. SINGULAIR [Concomitant]
     Route: 048
  7. SPIRONOLACTONE [Concomitant]
     Route: 048
  8. SYNTHROID [Concomitant]
     Route: 048
  9. XANAX [Concomitant]
     Route: 048
  10. CHLORTHALIDONE [Concomitant]
     Route: 048
  11. ESTRADIOL [Concomitant]
     Route: 048
  12. ACTONEL [Concomitant]
     Route: 048
  13. ZETIA [Concomitant]
     Route: 048
  14. MUCINEX [Concomitant]
     Route: 048
  15. FLOVENT [Concomitant]
     Route: 045
  16. XOPENEX [Concomitant]
     Route: 055
  17. MAGNESIUM [Concomitant]
     Route: 048
  18. COQ10 [Concomitant]
     Route: 048
  19. CITRUS BIOFLAVON [Concomitant]
     Route: 048
  20. SPIRIVA [Concomitant]
     Route: 055

REACTIONS (5)
  - Sleep terror [Unknown]
  - Agitation [Unknown]
  - Hot flush [Unknown]
  - Dyspnoea [Unknown]
  - Nasal congestion [Unknown]
